FAERS Safety Report 6308282-6 (Version None)
Quarter: 2009Q3

REPORT INFORMATION
  Report Type: 
  Country: None (occurrence: None)
  Receive Date: 20090813
  Receipt Date: 20090810
  Transmission Date: 20100115
  Serious: Yes (Hospitalization)
  Sender: FDA-Public Use
  Company Number: US-MERCK-99032391

PATIENT
  Age: 46 Year
  Sex: Male
  Weight: 72 kg

DRUGS (9)
  1. SINGULAIR [Suspect]
     Indication: ASTHMA
     Route: 048
     Dates: start: 19980801, end: 19981201
  2. GLYBURIDE [Suspect]
     Indication: TYPE 2 DIABETES MELLITUS
     Route: 065
     Dates: start: 19981001, end: 19981201
  3. ZANTAC [Suspect]
     Route: 065
     Dates: end: 19981201
  4. ZANTAC [Suspect]
     Route: 042
     Dates: start: 19981127, end: 19981127
  5. PREDNISONE [Concomitant]
     Route: 065
     Dates: end: 19981201
  6. IMODIUM [Concomitant]
     Route: 065
     Dates: start: 19981122, end: 19981122
  7. LEVAQUIN [Concomitant]
     Route: 065
     Dates: start: 19981127, end: 19981129
  8. ZANTAC [Suspect]
     Route: 042
     Dates: end: 19981203
  9. LEVOFLOXACIN [Concomitant]
     Route: 065

REACTIONS (1)
  - HEPATITIS [None]
